FAERS Safety Report 10176192 (Version 1)
Quarter: 2014Q2

REPORT INFORMATION
  Report Type: Spontaneous
  Country: IN (occurrence: IN)
  Receive Date: 20140516
  Receipt Date: 20140516
  Transmission Date: 20141212
  Serious: Yes (Death)
  Sender: FDA-Public Use
  Company Number: IN-009507513-1405IND006526

PATIENT
  Sex: Male
  Weight: 84 kg

DRUGS (1)
  1. JANUMET [Suspect]
     Dosage: DOSE 2/DAY,
     Route: 048
     Dates: start: 20130526, end: 201312

REACTIONS (1)
  - Death [Fatal]
